FAERS Safety Report 18605282 (Version 3)
Quarter: 2021Q1

REPORT INFORMATION
  Report Type: Report from Study
  Country: US (occurrence: US)
  Receive Date: 20201211
  Receipt Date: 20210201
  Transmission Date: 20210419
  Serious: Yes (Hospitalization)
  Sender: FDA-Public Use
  Company Number: NVSC2020US328084

PATIENT
  Age: 51 Year
  Sex: Male

DRUGS (3)
  1. DECITABINE. [Suspect]
     Active Substance: DECITABINE
     Indication: MYELODYSPLASTIC SYNDROME
     Dosage: 20 MG/M2
     Route: 042
     Dates: start: 20200921, end: 20201002
  2. INC424A [Suspect]
     Active Substance: RUXOLITINIB
     Indication: MYELODYSPLASTIC SYNDROME
     Dosage: 5 MG, QD
     Route: 048
     Dates: start: 20200810, end: 20201012
  3. DONOR LYMPHOCYTE INFUSION [Suspect]
     Active Substance: LYMPHOCYTES
     Indication: MYELODYSPLASTIC SYNDROME
     Dosage: UNK
     Route: 042
     Dates: start: 20201009, end: 20201009

REACTIONS (1)
  - Acute graft versus host disease in intestine [Recovered/Resolved with Sequelae]

NARRATIVE: CASE EVENT DATE: 20201120
